FAERS Safety Report 10502890 (Version 2)
Quarter: 2014Q4

REPORT INFORMATION
  Report Type: Spontaneous
  Country: PL (occurrence: PL)
  Receive Date: 20141007
  Receipt Date: 20141013
  Transmission Date: 20150528
  Serious: Yes (Death, Hospitalization)
  Sender: FDA-Public Use
  Company Number: PHHY2014PL129695

PATIENT
  Age: 35 Year
  Sex: Female
  Weight: 100 kg

DRUGS (8)
  1. SUFENTANIL [Suspect]
     Active Substance: SUFENTANIL
     Indication: SEDATION
     Route: 041
  2. SANDOGLOBULIN [Suspect]
     Active Substance: HUMAN IMMUNOGLOBULIN G
     Indication: PRODUCT USED FOR UNKNOWN INDICATION
     Route: 065
  3. CICLOSPORIN [Suspect]
     Active Substance: CYCLOSPORINE
     Indication: PRODUCT USED FOR UNKNOWN INDICATION
     Route: 065
  4. LAMOTRIGINE. [Suspect]
     Active Substance: LAMOTRIGINE
     Indication: SCHIZOPHRENIA, PARANOID TYPE
     Route: 065
  5. FUROSEMIDE. [Suspect]
     Active Substance: FUROSEMIDE
     Indication: POLYURIA
     Route: 065
  6. MIDAZOLAM [Suspect]
     Active Substance: MIDAZOLAM\MIDAZOLAM HYDROCHLORIDE
     Indication: SEDATION
     Route: 041
  7. ALBUMIN [Suspect]
     Active Substance: ALBUMIN (HUMAN)
     Indication: PRODUCT USED FOR UNKNOWN INDICATION
     Route: 065
  8. SULFACETAMIDE [Suspect]
     Active Substance: SULFACETAMIDE
     Route: 065

REACTIONS (21)
  - Cardiac arrest [Fatal]
  - Nasal congestion [Unknown]
  - Hepatic enzyme increased [Unknown]
  - Blood sodium decreased [Unknown]
  - Neutrophil count increased [Unknown]
  - Condition aggravated [Unknown]
  - Blood calcium abnormal [Unknown]
  - Blood urine present [Unknown]
  - Protein urine present [Unknown]
  - Oedema peripheral [Unknown]
  - Drug ineffective [Fatal]
  - Urobilinogen urine increased [Unknown]
  - Electrolyte imbalance [Unknown]
  - Conjunctival hyperaemia [Unknown]
  - Pyrexia [Unknown]
  - Hypoalbuminaemia [Unknown]
  - Toxic epidermal necrolysis [Unknown]
  - Conjunctival erosion [Unknown]
  - Mucosal erosion [Unknown]
  - Mouth haemorrhage [Unknown]
  - Pleural effusion [Unknown]
